FAERS Safety Report 7199560-X (Version None)
Quarter: 2010Q4

REPORT INFORMATION
  Report Type: 
  Country: None (occurrence: None)
  Receive Date: 20101228
  Receipt Date: 20101215
  Transmission Date: 20110411
  Serious: Yes (Other)
  Sender: FDA-Public Use
  Company Number: US-CELGENEUS-163-21880-09082270

PATIENT
  Sex: Female
  Weight: 74.3 kg

DRUGS (11)
  1. REVLIMID [Suspect]
     Route: 048
     Dates: start: 20081015, end: 20090714
  2. CLONAZEPAM [Concomitant]
     Route: 065
  3. CLONAZEPAM [Concomitant]
     Route: 065
  4. PAXIL [Concomitant]
     Route: 065
  5. LOMOTIL [Concomitant]
     Route: 065
  6. LAMICTAL [Concomitant]
     Route: 048
  7. ESTRADIOL [Concomitant]
     Route: 061
  8. PROTONIX [Concomitant]
     Indication: DYSPEPSIA
     Route: 065
  9. PENTOSTATIN [Concomitant]
     Route: 065
  10. CYTOXAN [Concomitant]
     Route: 065
  11. RITUXIMAB [Concomitant]
     Route: 065

REACTIONS (1)
  - LUNG NEOPLASM [None]
